FAERS Safety Report 10981910 (Version 1)
Quarter: 2015Q2

REPORT INFORMATION
  Report Type: Report from Study
  Country: BR (occurrence: BR)
  Receive Date: 20150402
  Receipt Date: 20150402
  Transmission Date: 20150821
  Serious: Yes (Other)
  Sender: FDA-Public Use
  Company Number: PHHY2015BR038059

PATIENT
  Sex: Male

DRUGS (2)
  1. EXELON PATCH [Suspect]
     Active Substance: RIVASTIGMINE
     Indication: DEMENTIA ALZHEIMER^S TYPE
     Dosage: 2 DF, QD (5CM2/9MG)
     Route: 062
     Dates: start: 201501
  2. EXELON PATCH [Suspect]
     Active Substance: RIVASTIGMINE
     Dosage: 1 DF, QD (10CM2/18MG)
     Route: 062

REACTIONS (7)
  - Loss of consciousness [Not Recovered/Not Resolved]
  - Screaming [Recovering/Resolving]
  - Weight decreased [Recovering/Resolving]
  - Drug administration error [Unknown]
  - Dementia [Not Recovered/Not Resolved]
  - Aggression [Recovering/Resolving]
  - Memory impairment [Unknown]
